FAERS Safety Report 8952757 (Version 1)
Quarter: 2012Q4

REPORT INFORMATION
  Report Type: 
  Country: JP (occurrence: JP)
  Receive Date: 20121205
  Receipt Date: 20121205
  Transmission Date: 20130627
  Serious: Yes (Death)
  Sender: FDA-Public Use
  Company Number: JP-BRISTOL-MYERS SQUIBB COMPANY-17134073

PATIENT
  Age: 74 Year
  Sex: Male
  Weight: 58 kg

DRUGS (12)
  1. TAXOL INJ [Suspect]
     Indication: LUNG SQUAMOUS CELL CARCINOMA STAGE UNSPECIFIED
     Dosage: Second cycle:12Nov2012
     Route: 041
     Dates: start: 20121011
  2. PARAPLATIN [Suspect]
     Indication: LUNG SQUAMOUS CELL CARCINOMA STAGE UNSPECIFIED
     Route: 041
     Dates: start: 20121011
  3. DEXAMETHASONE [Concomitant]
     Route: 041
     Dates: start: 20121112
  4. POLARAMINE [Concomitant]
     Route: 041
     Dates: start: 20121112
  5. RANITIDINE [Concomitant]
     Route: 041
     Dates: start: 20121112
  6. GASTER [Concomitant]
  7. KYTRIL [Concomitant]
  8. TAKEPRON [Concomitant]
  9. ZETIA [Concomitant]
  10. CEPHADOL [Concomitant]
  11. CIBENOL [Concomitant]
  12. EMPYNASE [Concomitant]

REACTIONS (1)
  - Anaphylactic shock [Fatal]
